FAERS Safety Report 7633353-1 (Version None)
Quarter: 2011Q3

REPORT INFORMATION
  Report Type: 
  Country: None (occurrence: None)
  Receive Date: 20110725
  Receipt Date: 20100920
  Transmission Date: 20111222
  Serious: No
  Sender: FDA-Public Use
  Company Number: US-BRISTOL-MYERS SQUIBB COMPANY-15278708

PATIENT
  Age: 63 Year
  Sex: Male

DRUGS (1)
  1. SPRYCEL [Suspect]
     Indication: PROSTATE CANCER
     Dates: start: 20100201, end: 20100824

REACTIONS (1)
  - BRAIN NATRIURETIC PEPTIDE INCREASED [None]
